FAERS Safety Report 8327290 (Version 4)
Quarter: 2013Q3

REPORT INFORMATION
  Report Type: Report from Study
  Country: DE (occurrence: DE)
  Receive Date: 20120109
  Receipt Date: 20130726
  Transmission Date: 20140515
  Serious: Yes (Hospitalization, Other)
  Sender: FDA-Public Use
  Company Number: DE-ROCHE-1026730

PATIENT
  Age: 33 Year
  Sex: Male
  Weight: 82 kg

DRUGS (7)
  1. PEG-INTERFERON ALFA 2A [Suspect]
     Indication: CHRONIC HEPATITIS C
     Route: 058
     Dates: start: 20110614
  2. RIBAVIRIN [Suspect]
     Indication: CHRONIC HEPATITIS C
     Dosage: 1200 MG
     Route: 048
     Dates: start: 20110614
  3. IBUPROFEN [Concomitant]
     Indication: HEADACHE
     Route: 048
     Dates: start: 20110531
  4. IBUPROFEN [Concomitant]
     Dosage: 1400 MG AS REQUIRED
     Route: 048
     Dates: start: 20110531
  5. METOCLOPRAMIDE [Concomitant]
     Indication: NAUSEA
     Dosage: FORM:DROPS,AS REQUIRED
     Route: 048
     Dates: start: 20110815
  6. DIAZEPAM [Concomitant]
     Indication: PANIC DISORDER
     Route: 048
     Dates: start: 19900101
  7. DOXEPIN [Concomitant]
     Indication: PANIC DISORDER
     Route: 048
     Dates: start: 19900101

REACTIONS (4)
  - Cholelithiasis [Not Recovered/Not Resolved]
  - Cholecystitis [Not Recovered/Not Resolved]
  - Hydrocholecystis [Recovered/Resolved]
  - Nausea [Not Recovered/Not Resolved]
